FAERS Safety Report 11438567 (Version 1)
Quarter: 2015Q3

REPORT INFORMATION
  Report Type: Spontaneous
  Country: US (occurrence: US)
  Receive Date: 20150901
  Receipt Date: 20150901
  Transmission Date: 20151125
  Serious: Yes (Other)
  Sender: FDA-Public Use
  Company Number: US-ROCHE-1055394

PATIENT
  Sex: Male
  Weight: 88.98 kg

DRUGS (7)
  1. QUETIAPINE FUMARATE. [Concomitant]
     Active Substance: QUETIAPINE FUMARATE
     Route: 065
  2. COPEGUS [Suspect]
     Active Substance: RIBAVIRIN
     Indication: CHRONIC HEPATITIS C
     Dosage: DIVIDED DOSE
     Route: 048
     Dates: start: 20120213
  3. BOCEPREVIR [Suspect]
     Active Substance: BOCEPREVIR
     Indication: CHRONIC HEPATITIS C
     Route: 048
     Dates: start: 20120320, end: 20121028
  4. PEGASYS [Suspect]
     Active Substance: PEGINTERFERON ALFA-2A
     Indication: CHRONIC HEPATITIS C
     Route: 058
     Dates: start: 20120213
  5. QUETIAPINE FUMARATE. [Concomitant]
     Active Substance: QUETIAPINE FUMARATE
     Route: 065
  6. NEUPOGEN [Concomitant]
     Active Substance: FILGRASTIM
     Route: 065
  7. PEGASYS [Suspect]
     Active Substance: PEGINTERFERON ALFA-2A
     Route: 058

REACTIONS (15)
  - Decreased appetite [Unknown]
  - Somnolence [Unknown]
  - Fatigue [Unknown]
  - Anaemia [Unknown]
  - Bone pain [Unknown]
  - Weight decreased [Unknown]
  - Weight decreased [Not Recovered/Not Resolved]
  - Myalgia [Unknown]
  - Liver disorder [Unknown]
  - Irritability [Unknown]
  - Hallucination, auditory [Unknown]
  - Dry mouth [Unknown]
  - Insomnia [Unknown]
  - Neutrophil count decreased [Unknown]
  - Paranoia [Unknown]
